FAERS Safety Report 23512329 (Version 1)
Quarter: 2024Q1

REPORT INFORMATION
  Report Type: Spontaneous
  Country: CA (occurrence: CA)
  Receive Date: 20240212
  Receipt Date: 20240212
  Transmission Date: 20240410
  Serious: Yes (Death)
  Sender: FDA-Public Use
  Company Number: CA-BAUSCH-BL-2024-001888

PATIENT
  Age: 88 Year
  Sex: Female

DRUGS (1)
  1. DILTIAZEM [Suspect]
     Active Substance: DILTIAZEM
     Indication: Product used for unknown indication
     Route: 065

REACTIONS (8)
  - Accidental death [Fatal]
  - Atrial fibrillation [Fatal]
  - Bradycardia [Fatal]
  - Chronic obstructive pulmonary disease [Fatal]
  - General physical health deterioration [Fatal]
  - Toxicity to various agents [Fatal]
  - Overdose [Fatal]
  - Product administration error [Fatal]
